FAERS Safety Report 6506870-5 (Version None)
Quarter: 2009Q4

REPORT INFORMATION
  Report Type: 
  Country: None (occurrence: None)
  Receive Date: 20091216
  Receipt Date: 20091201
  Transmission Date: 20100525
  Serious: Yes (Death)
  Sender: FDA-Public Use
  Company Number: 127

PATIENT
  Age: 67 Year
  Sex: Female
  Weight: 85.2762 kg

DRUGS (2)
  1. FAZACLO ODT [Suspect]
     Indication: SCHIZOPHRENIA
     Dosage: 300 MG PO DAILY
     Route: 048
     Dates: start: 20061227, end: 20070413
  2. ZOLOFT [Concomitant]

REACTIONS (1)
  - ACUTE MYOCARDIAL INFARCTION [None]
